FAERS Safety Report 25542055 (Version 1)
Quarter: 2025Q3

REPORT INFORMATION
  Report Type: Spontaneous
  Country: US (occurrence: US)
  Receive Date: 20250711
  Receipt Date: 20250711
  Transmission Date: 20251021
  Serious: Yes (Other)
  Sender: NOVO NORDISK
  Company Number: US-NOVOPROD-1474729

PATIENT
  Sex: Female

DRUGS (2)
  1. LEVEMIR [Suspect]
     Active Substance: INSULIN DETEMIR
     Indication: Type 1 diabetes mellitus
     Dates: end: 2023
  2. TRESIBA [Suspect]
     Active Substance: INSULIN DEGLUDEC
     Indication: Type 1 diabetes mellitus
     Dosage: 27 IU, QD (EVERY MORNING)
     Route: 058
     Dates: start: 2023

REACTIONS (3)
  - Lens dislocation [Unknown]
  - Blindness unilateral [Unknown]
  - Altered visual depth perception [Unknown]
